FAERS Safety Report 9967698 (Version 3)
Quarter: 2014Q2

REPORT INFORMATION
  Report Type: Report from Study
  Country: DE (occurrence: DE)
  Receive Date: 20140306
  Receipt Date: 20140403
  Transmission Date: 20141212
  Serious: Yes (Life-Threatening, Hospitalization, Other)
  Sender: FDA-Public Use
  Company Number: DE-ROCHE-1318399

PATIENT
  Age: 49 Year
  Sex: Male
  Weight: 86 kg

DRUGS (8)
  1. BEVACIZUMAB [Suspect]
     Indication: NON-SMALL CELL LUNG CANCER
     Dosage: 580 MG
     Route: 042
     Dates: start: 20131030, end: 20131120
  2. GEMCITABINE [Suspect]
     Indication: NON-SMALL CELL LUNG CANCER
     Dosage: 1000MG/M2; DAY 1 AND DAY 8
     Route: 042
     Dates: start: 20131001, end: 20131127
  3. CARBOPLATIN [Suspect]
     Indication: NON-SMALL CELL LUNG CANCER
     Dosage: AUC4
     Route: 042
     Dates: start: 20131001, end: 20131120
  4. CARBOPLATIN [Suspect]
     Dosage: AUC4
     Route: 042
  5. NOVALGIN (GERMANY) [Concomitant]
     Indication: PAIN
     Dosage: MAXIMUM OF 8 TABLETS PER DAY
     Route: 048
     Dates: start: 20131107
  6. SPIRIVA [Concomitant]
     Indication: CHRONIC OBSTRUCTIVE PULMONARY DISEASE
     Dosage: 1-0-0
     Route: 048
     Dates: start: 20130918
  7. PAMIDRONATE [Concomitant]
     Indication: METASTASES TO BONE
     Route: 042
     Dates: start: 20131106, end: 20131127
  8. METAMIZOL [Concomitant]
     Indication: PAIN
     Route: 048

REACTIONS (3)
  - Pulmonary embolism [Recovering/Resolving]
  - Pericardial effusion [Recovering/Resolving]
  - Chronic fatigue syndrome [Unknown]
